FAERS Safety Report 18570638 (Version 3)
Quarter: 2021Q2

REPORT INFORMATION
  Report Type: Spontaneous
  Country: JP (occurrence: JP)
  Receive Date: 20201202
  Receipt Date: 20210522
  Transmission Date: 20210717
  Serious: Yes (Death, Other)
  Sender: FDA-Public Use
  Company Number: JP-SEATTLE GENETICS-2020SGN05313

PATIENT
  Age: 66 Year
  Sex: Male

DRUGS (3)
  1. ADCETRIS [Suspect]
     Active Substance: BRENTUXIMAB VEDOTIN
     Indication: HODGKIN^S DISEASE STAGE IV
     Dosage: 30 MILLIGRAM, QD
     Route: 041
     Dates: start: 20201026, end: 20201026
  2. CEFMETAZOLE SODIUM [Concomitant]
     Active Substance: CEFMETAZOLE SODIUM
     Indication: PYREXIA
     Dosage: 2 GRAM, BID
     Route: 042
     Dates: start: 20201024, end: 20201101
  3. ZITHROMAC [Concomitant]
     Active Substance: AZITHROMYCIN DIHYDRATE
     Indication: PYREXIA
     Dosage: 500 MILLIGRAM, QD
     Route: 042
     Dates: start: 20201027, end: 20201101

REACTIONS (4)
  - Renal disorder [Fatal]
  - Coagulopathy [Fatal]
  - Platelet count decreased [Fatal]
  - Liver disorder [Fatal]

NARRATIVE: CASE EVENT DATE: 20201029
